FAERS Safety Report 7635235 (Version 2)
Quarter: 2019Q2

REPORT INFORMATION
  Report Type: Report from Study
  Country: US (occurrence: US)
  Receive Date: 20101020
  Receipt Date: 20190619
  Transmission Date: 20190711
  Serious: Yes (Other)
  Sender: FDA-Public Use
  Company Number: US-NAPPMUNDI-USA-2010-0049155

PATIENT
  Sex: Male

DRUGS (3)
  1. DILAUDID [Suspect]
     Active Substance: HYDROMORPHONE HYDROCHLORIDE
     Indication: BREAKTHROUGH PAIN
     Dosage: 40-48 MG, UNK
     Route: 048
  2. MORPHINE SULFATE (SIMILAR TO NDA 19-516) [Suspect]
     Active Substance: MORPHINE SULFATE
     Indication: BACK PAIN
     Route: 048
  3. OXYCONTIN [Suspect]
     Active Substance: OXYCODONE HYDROCHLORIDE
     Indication: BACK PAIN
     Dosage: 40 MG, SEE TEXT
     Route: 048

REACTIONS (11)
  - Intentional product misuse [Unknown]
  - Malaise [Unknown]
  - Weight increased [Unknown]
  - Pain [Unknown]
  - Renal impairment [Recovered/Resolved]
  - Therapeutic product effect decreased [Unknown]
  - Constipation [Unknown]
  - HIV infection [Unknown]
  - Dysuria [Recovered/Resolved]
  - Fluid retention [Unknown]
  - Spinal laminectomy [Unknown]

NARRATIVE: CASE EVENT DATE: 2013
